FAERS Safety Report 6346688-X (Version None)
Quarter: 2009Q3

REPORT INFORMATION
  Report Type: 
  Country: None (occurrence: None)
  Receive Date: 20090904
  Receipt Date: 20090827
  Transmission Date: 20100115
  Serious: Yes (Death)
  Sender: FDA-Public Use
  Company Number: TKS 41918

PATIENT
  Age: 21 Year
  Sex: Male

DRUGS (2)
  1. UVADEX [Suspect]
     Indication: ANTICOAGULANT THERAPY
     Dosage: IV
     Route: 042
     Dates: start: 20090827
  2. UVADEX [Suspect]
     Indication: GRAFT VERSUS HOST DISEASE
     Dosage: IV
     Route: 042
     Dates: start: 20090827

REACTIONS (3)
  - CARDIAC ARREST [None]
  - COUGH [None]
  - DYSPNOEA [None]
